FAERS Safety Report 7655402-7 (Version None)
Quarter: 2011Q3

REPORT INFORMATION
  Report Type: 
  Country: None (occurrence: None)
  Receive Date: 20110804
  Receipt Date: 20110726
  Transmission Date: 20111222
  Serious: Yes (Hospitalization, Other)
  Sender: FDA-Public Use
  Company Number: TR-GENZYME-THYM-1002649

PATIENT
  Age: 27 Year
  Sex: Female

DRUGS (5)
  1. PREDNISONE [Concomitant]
     Route: 048
  2. TACROLIMUS [Concomitant]
     Indication: PROPHYLAXIS AGAINST TRANSPLANT REJECTION
  3. MYCOPHENOLATE MOFETIL [Concomitant]
     Indication: PROPHYLAXIS AGAINST TRANSPLANT REJECTION
  4. THYMOGLOBULIN [Suspect]
     Indication: PROPHYLAXIS AGAINST TRANSPLANT REJECTION
     Dosage: 2 MG/KG, UNK
     Route: 042
  5. PREDNISONE [Concomitant]
     Indication: PROPHYLAXIS AGAINST TRANSPLANT REJECTION

REACTIONS (5)
  - VASCULAR GRAFT THROMBOSIS [None]
  - CANDIDIASIS [None]
  - GRAFT LOSS [None]
  - MYCOTIC ANEURYSM [None]
  - APPENDICITIS PERFORATED [None]
